FAERS Safety Report 4363112-7 (Version None)
Quarter: 2004Q2

REPORT INFORMATION
  Report Type: 
  Country: None (occurrence: None)
  Receive Date: 20040518
  Receipt Date: 20040316
  Transmission Date: 20050107
  Serious: Yes (Death)
  Sender: FDA-Public Use
  Company Number: S04-IRL-00770-01

PATIENT
  Age: 60 Year
  Sex: Male

DRUGS (14)
  1. CITALOPRAM HYDROBROMIDE [Suspect]
     Indication: DEPRESSION
     Dosage: 30 MG QD PO
     Route: 048
     Dates: start: 20000710, end: 20030221
  2. CITALOPRAM HYDROBROMIDE [Suspect]
     Indication: DEPRESSION
     Dosage: 20 MG QD PO
     Route: 048
     Dates: start: 20000515, end: 20000709
  3. CHLORPROMAZINE [Concomitant]
  4. PERIACTIN [Concomitant]
  5. ENSURE PLUS [Concomitant]
  6. COGENTIN [Concomitant]
  7. FYBOGEL (ISPAGHULA) [Concomitant]
  8. BENZTROPINE MESYLATE [Concomitant]
  9. DIAZEPAM [Concomitant]
  10. MULYTELY [Concomitant]
  11. LACTULOSE [Concomitant]
  12. FLETCHER'S PHOSPHATE ENEMA [Concomitant]
  13. FLUPHENAZINE DECANOATE [Concomitant]
  14. NEXIUM [Concomitant]

REACTIONS (17)
  - ARRHYTHMIA [None]
  - ASTHENIA [None]
  - CONSTIPATION [None]
  - DRUG INTERACTION [None]
  - DRUG LEVEL ABOVE THERAPEUTIC [None]
  - DRUG TOXICITY [None]
  - EMBOLISM [None]
  - FALL [None]
  - HEAD INJURY [None]
  - INFLAMMATION [None]
  - LIVER DISORDER [None]
  - LUNG DISORDER [None]
  - MARKEDLY REDUCED DIETARY INTAKE [None]
  - METABOLIC DISORDER [None]
  - RENAL DISORDER [None]
  - SUDDEN DEATH [None]
  - WOUND [None]
